FAERS Safety Report 5235058-3 (Version None)
Quarter: 2007Q1

REPORT INFORMATION
  Report Type: 
  Country: None (occurrence: None)
  Receive Date: 20070207
  Receipt Date: 20070122
  Transmission Date: 20070707
  Serious: Yes (Other)
  Sender: FDA-Public Use
  Company Number: TRP_0866_2006

PATIENT
  Age: 52 Year
  Sex: Female
  Weight: 113.3993 kg

DRUGS (2)
  1. RIBAPAK/ RIBAVIRIN/ THREE RIVERS PHARMA [Suspect]
     Indication: HEPATITIS C
     Dosage: 600 MG BID PO
     Route: 048
     Dates: start: 20060728, end: 20061003
  2. PEGASYS [Suspect]
     Indication: HEPATITIS C
     Dosage: 180 MCG QWK SC
     Route: 058
     Dates: start: 20060728, end: 20061003

REACTIONS (31)
  - AGGRESSION [None]
  - ALOPECIA [None]
  - ANOREXIA [None]
  - ASTHENIA [None]
  - BLISTER [None]
  - BLISTER INFECTED [None]
  - BODY TEMPERATURE INCREASED [None]
  - CHROMATURIA [None]
  - CONDITION AGGRAVATED [None]
  - CRYING [None]
  - DEPRESSION [None]
  - DIARRHOEA [None]
  - DISTURBANCE IN ATTENTION [None]
  - DRY SKIN [None]
  - DYSURIA [None]
  - HOMICIDAL IDEATION [None]
  - NAUSEA [None]
  - NEGATIVE THOUGHTS [None]
  - PAIN [None]
  - PARALYSIS [None]
  - POLLAKIURIA [None]
  - PRURITUS [None]
  - RECTAL LESION [None]
  - SCAR [None]
  - SUICIDAL IDEATION [None]
  - UNEVALUABLE EVENT [None]
  - URINE ODOUR ABNORMAL [None]
  - VAGINAL INFECTION [None]
  - VAGINAL LESION [None]
  - VISUAL DISTURBANCE [None]
  - WEIGHT DECREASED [None]
